FAERS Safety Report 19759679 (Version 1)
Quarter: 2021Q3

REPORT INFORMATION
  Report Type: Spontaneous
  Country: CA (occurrence: CA)
  Receive Date: 20210830
  Receipt Date: 20210830
  Transmission Date: 20211014
  Serious: Yes (Other)
  Sender: FDA-Public Use
  Company Number: CA-AUROBINDO-AUR-APL-2021-035947

PATIENT
  Sex: Female

DRUGS (1)
  1. AMOXICILLIN ORAL SUSPENSION [Suspect]
     Active Substance: AMOXICILLIN
     Indication: TOOTH EXTRACTION
     Dosage: 500 MILLIGRAM
     Route: 065

REACTIONS (8)
  - Burning sensation [Not Recovered/Not Resolved]
  - Abdominal pain upper [Not Recovered/Not Resolved]
  - Headache [Not Recovered/Not Resolved]
  - Pain [Not Recovered/Not Resolved]
  - Asthenia [Not Recovered/Not Resolved]
  - Arthralgia [Not Recovered/Not Resolved]
  - Erythema [Not Recovered/Not Resolved]
  - Fatigue [Not Recovered/Not Resolved]
